FAERS Safety Report 21807254 (Version 1)
Quarter: 2023Q1

REPORT INFORMATION
  Report Type: Spontaneous
  Country: BE (occurrence: BE)
  Receive Date: 20230102
  Receipt Date: 20230102
  Transmission Date: 20230417
  Serious: Yes (Hospitalization)
  Sender: FDA-Public Use
  Company Number: None

PATIENT
  Age: 71 Year
  Sex: Male

DRUGS (1)
  1. KEYTRUDA [Suspect]
     Active Substance: PEMBROLIZUMAB
     Indication: Bronchial carcinoma
     Dosage: COURSE OF 200 MG EVERY 21 DAYS (02/09/2020 AND 23/09/2020) 2 COURSES OF KEYTRUDA RECEIVED 21 DAYS AP
     Route: 042
     Dates: start: 202009

REACTIONS (6)
  - Apraxia [Not Recovered/Not Resolved]
  - Myasthenic syndrome [Not Recovered/Not Resolved]
  - Neck pain [Not Recovered/Not Resolved]
  - Polymyositis [Not Recovered/Not Resolved]
  - Myalgia [Not Recovered/Not Resolved]
  - Dropped head syndrome [Not Recovered/Not Resolved]

NARRATIVE: CASE EVENT DATE: 20201007
